FAERS Safety Report 7103113-9 (Version None)
Quarter: 2010Q4

REPORT INFORMATION
  Report Type: 
  Country: None (occurrence: None)
  Receive Date: 20101115
  Receipt Date: 20100222
  Transmission Date: 20110411
  Serious: No
  Sender: FDA-Public Use
  Company Number: US-KINGPHARMUSA00001-K201000207

PATIENT
  Age: 84 Year
  Sex: Male
  Weight: 104.31 kg

DRUGS (1)
  1. LEVOXYL [Suspect]
     Indication: THYROIDECTOMY
     Dosage: 125 MCG, QD
     Route: 048
     Dates: start: 20000101, end: 20100219

REACTIONS (4)
  - BLOOD THYROID STIMULATING HORMONE INCREASED [None]
  - DRUG INEFFECTIVE [None]
  - FATIGUE [None]
  - HYPOTHYROIDISM [None]
